FAERS Safety Report 8188949-8 (Version None)
Quarter: 2012Q1

REPORT INFORMATION
  Report Type: 
  Country: None (occurrence: None)
  Receive Date: 20120306
  Receipt Date: 20120229
  Transmission Date: 20120608
  Serious: No
  Sender: FDA-Public Use
  Company Number: US-B.I. PHARMACEUTICALS,INC./RIDGEFIELD-2011-BP-18243BP

PATIENT
  Sex: Female
  Weight: 90.72 kg

DRUGS (44)
  1. FLOVENT [Concomitant]
     Route: 055
     Dates: start: 20110526
  2. POTASSIUM CHLORIDE [Concomitant]
     Indication: MINERAL SUPPLEMENTATION
     Dosage: 99 MG
     Route: 048
  3. BENADRYL [Concomitant]
  4. VENTOLIN [Concomitant]
     Dates: start: 20110203
  5. IBUPROFEN [Concomitant]
  6. IRON [Concomitant]
     Dosage: 1300 MG
  7. METFORMIN HCL [Concomitant]
  8. METOPROLOL TARTRATE [Concomitant]
     Indication: BLOOD PRESSURE
     Dosage: 50 MG
     Route: 048
     Dates: start: 20110203
  9. SYNTHROID [Concomitant]
     Indication: SUPPLEMENTATION THERAPY
     Dosage: 112 MCG
     Route: 048
     Dates: start: 20110203
  10. OMEPRAZOLE [Concomitant]
     Indication: GASTROOESOPHAGEAL REFLUX DISEASE
     Dosage: 40 MG
     Route: 048
     Dates: start: 20110203
  11. TRILIPIX [Concomitant]
     Dosage: 135 MG
     Route: 048
     Dates: start: 20110203
  12. FLOVENT [Concomitant]
     Indication: BRONCHITIS
     Route: 055
     Dates: start: 20110630
  13. ATROVENT [Concomitant]
     Dosage: 17 MCG
     Route: 055
     Dates: start: 20110526
  14. ASCORBIC ACID [Concomitant]
     Indication: VITAMIN SUPPLEMENTATION
     Dosage: 1000 MG
     Route: 048
     Dates: start: 20100624
  15. CALCIUM+D [Concomitant]
     Route: 048
     Dates: start: 20100624
  16. MIRALAX [Concomitant]
  17. FLEXAMIN [Concomitant]
     Dosage: 60 MG
  18. GLUCOPHAGE [Concomitant]
     Indication: TYPE 2 DIABETES MELLITUS
     Dosage: 2000 MG
     Route: 048
     Dates: start: 20100311
  19. ALBUTEROL INHALER [Concomitant]
     Route: 055
     Dates: start: 20110505
  20. CEFUROXIME [Concomitant]
  21. GABAPENTIN [Concomitant]
     Dosage: 600 MG
     Dates: start: 20110203
  22. CETIRIZINE [Concomitant]
  23. STOOL SOFTENER [Concomitant]
  24. HYPER-SOL [Concomitant]
  25. LOVAZA [Concomitant]
     Dosage: 4 G
     Route: 048
     Dates: start: 20110630
  26. NASONEX [Concomitant]
  27. ALLEGRA [Concomitant]
     Dosage: 180 MG
  28. LOVAZA [Concomitant]
     Dosage: 2 MG
     Route: 048
  29. ATROVENT [Concomitant]
     Indication: BRONCHITIS
     Dosage: 17 MCG
     Route: 055
     Dates: start: 20101101
  30. SOVAGA [Concomitant]
     Dosage: 1 G
  31. ACTOS [Concomitant]
     Dosage: 30 MG
  32. HYPER-SOL [Concomitant]
     Route: 055
     Dates: start: 20110526
  33. ASPIRIN [Concomitant]
     Indication: PAIN
     Dosage: 325 MG
     Route: 048
     Dates: start: 20110203
  34. FLUTICASONE PROPIONATE [Concomitant]
     Indication: BRONCHITIS
     Route: 055
     Dates: start: 20101101
  35. MAGNESIUM [Concomitant]
     Indication: MINERAL SUPPLEMENTATION
     Dosage: 250 MG
     Route: 048
  36. SENNA [Concomitant]
  37. CEFTIN [Concomitant]
     Route: 055
     Dates: start: 20110526
  38. TRADJENTA [Suspect]
     Indication: TYPE 2 DIABETES MELLITUS
     Dosage: 5 MG
     Route: 048
     Dates: start: 20110630, end: 20110714
  39. PRAVACHOL [Concomitant]
     Indication: BLOOD CHOLESTEROL
     Dosage: 20 MG
     Route: 048
     Dates: start: 20110203
  40. ALBUTEROL INHALER [Concomitant]
     Indication: BRONCHITIS
     Route: 055
     Dates: start: 20101101
  41. MULTI-VITAMIN [Concomitant]
     Indication: VITAMIN SUPPLEMENTATION
     Route: 048
  42. VITAMIN D [Concomitant]
     Indication: VITAMIN SUPPLEMENTATION
     Dosage: 2000 MG
     Route: 048
  43. ATARAX [Concomitant]
  44. CEFTIN [Concomitant]

REACTIONS (5)
  - BLISTER [None]
  - SKIN EXFOLIATION [None]
  - RASH PRURITIC [None]
  - RASH GENERALISED [None]
  - ECZEMA [None]
